FAERS Safety Report 6590897-1 (Version None)
Quarter: 2010Q1

REPORT INFORMATION
  Report Type: 
  Country: None (occurrence: None)
  Receive Date: 20100219
  Receipt Date: 20100216
  Transmission Date: 20100710
  Serious: Yes (Life-Threatening, Hospitalization)
  Sender: FDA-Public Use
  Company Number: US-JNJFOC-20100109223

PATIENT
  Sex: Male

DRUGS (16)
  1. RISPERDAL CONSTA [Suspect]
     Indication: AFFECTIVE DISORDER
     Route: 030
  2. RISPERDAL CONSTA [Suspect]
     Indication: BORDERLINE PERSONALITY DISORDER
     Route: 030
  3. XOPENEX [Concomitant]
     Route: 065
  4. VALIUM [Concomitant]
     Indication: ANXIETY
  5. METOPROLOL TARTRATE [Concomitant]
     Indication: BLOOD PRESSURE
  6. PROTONIX [Concomitant]
     Indication: GASTROOESOPHAGEAL REFLUX DISEASE
  7. ABILIFY [Concomitant]
     Route: 048
  8. ABILIFY [Concomitant]
     Route: 048
  9. LISINOPRIL [Concomitant]
     Indication: BLOOD PRESSURE
  10. ELAVIL [Concomitant]
     Indication: DEPRESSION
     Dosage: 3-6 HOURS OF SLEEP
  11. ELAVIL [Concomitant]
     Indication: SLEEP DISORDER THERAPY
     Dosage: 3-6 HOURS OF SLEEP
  12. HALCION [Concomitant]
     Indication: SLEEP DISORDER THERAPY
     Dosage: 1-2 HOURS OF SLEEP
  13. FLEXERIL [Concomitant]
     Indication: MUSCLE RELAXANT THERAPY
  14. TRICOR [Concomitant]
  15. NEURONTIN [Concomitant]
     Indication: CONVULSION
  16. CYMBALTA [Concomitant]
     Indication: DEPRESSION

REACTIONS (2)
  - INCORRECT DOSE ADMINISTERED [None]
  - MYOCARDIAL INFARCTION [None]
